FAERS Safety Report 5835413-4 (Version None)
Quarter: 2008Q3

REPORT INFORMATION
  Report Type: 
  Country: None (occurrence: None)
  Receive Date: 20080804
  Receipt Date: 20080729
  Transmission Date: 20090109
  Serious: Yes (Hospitalization)
  Sender: FDA-Public Use
  Company Number: 19844

PATIENT
  Age: 68 Year
  Sex: Female
  Weight: 78.0187 kg

DRUGS (3)
  1. NIPENT [Suspect]
     Indication: CHRONIC LYMPHOCYTIC LEUKAEMIA
     Dosage: 7 MG Q21DAYS IV
     Route: 042
     Dates: start: 20080709, end: 20080709
  2. CYTOXAN [Concomitant]
  3. IMMUNE GLOBULIN INTRAVENOUS (HUMAN) [Concomitant]

REACTIONS (4)
  - ANAEMIA [None]
  - CHOLECYSTITIS [None]
  - CLOSTRIDIUM DIFFICILE COLITIS [None]
  - RASH PRURITIC [None]
